FAERS Safety Report 16101440 (Version 3)
Quarter: 2019Q3

REPORT INFORMATION
  Report Type: Report from Study
  Country: ZA (occurrence: ZA)
  Receive Date: 20190321
  Receipt Date: 20190826
  Transmission Date: 20191004
  Serious: Yes (Other)
  Sender: FDA-Public Use
  Company Number: PHHY2019ZA059911

PATIENT
  Age: 49 Year
  Sex: Female
  Weight: 90 kg

DRUGS (2)
  1. TRAMETINIB [Suspect]
     Active Substance: TRAMETINIB
     Indication: MALIGNANT MELANOMA
     Dosage: 2 MG, QD
     Route: 048
     Dates: start: 20190213
  2. DABRAFENIB [Suspect]
     Active Substance: DABRAFENIB
     Indication: MALIGNANT MELANOMA
     Dosage: 75 MG, BID
     Route: 048
     Dates: start: 20190213

REACTIONS (8)
  - Malaise [Unknown]
  - Headache [Recovered/Resolved]
  - C-reactive protein increased [Unknown]
  - Cellulitis [Recovered/Resolved]
  - Axillary mass [Unknown]
  - Hepatic enzyme increased [Unknown]
  - Nasal abscess [Unknown]
  - Swelling face [Unknown]

NARRATIVE: CASE EVENT DATE: 20190309
